FAERS Safety Report 9462840 (Version 1)
Quarter: 2013Q3

REPORT INFORMATION
  Report Type: Spontaneous
  Country: IN (occurrence: None)
  Receive Date: 20130814
  Receipt Date: 20130814
  Transmission Date: 20140515
  Serious: Yes (Other)
  Sender: FDA-Public Use
  Company Number: 2013P1017356

PATIENT
  Age: 25 Year
  Sex: Female
  Weight: 60 kg

DRUGS (5)
  1. EPINEPHRINE [Suspect]
     Indication: TYMPANOPLASTY
  2. LIGNOCAINE [Concomitant]
  3. GLYCOPYRROLATE [Concomitant]
  4. PENTAZOCINE [Concomitant]
  5. PROMETHAZINE [Concomitant]

REACTIONS (9)
  - Restlessness [None]
  - Tachycardia [None]
  - Blood pressure increased [None]
  - Headache [None]
  - Chest pain [None]
  - Electrocardiogram ST segment depression [None]
  - Electrocardiogram T wave inversion [None]
  - Overdose [None]
  - Toxicity to various agents [None]
